FAERS Safety Report 14953339 (Version 1)
Quarter: 2018Q2

REPORT INFORMATION
  Report Type: Spontaneous
  Country: US (occurrence: US)
  Receive Date: 20180509
  Receipt Date: 20180509
  Transmission Date: 20180711
  Serious: No
  Sender: FDA-Public Use
  Company Number: None

PATIENT
  Sex: Female
  Weight: 86.18 kg

DRUGS (2)
  1. XELJANZ XR [Suspect]
     Active Substance: TOFACITINIB CITRATE
     Indication: RHEUMATOID ARTHRITIS
     Route: 048
     Dates: start: 201607
  2. METHOTREXATE 50MG/2ML GENERIC [Suspect]
     Active Substance: METHOTREXATE
     Route: 058
     Dates: start: 201501

REACTIONS (1)
  - Kidney infection [None]
